FAERS Safety Report 6979257-9 (Version None)
Quarter: 2010Q3

REPORT INFORMATION
  Report Type: 
  Country: None (occurrence: None)
  Receive Date: 20100913
  Receipt Date: 20100903
  Transmission Date: 20110219
  Serious: Yes (Death)
  Sender: FDA-Public Use
  Company Number: HR-ABBOTT-10P-216-0666747-00

PATIENT
  Age: 65 Year
  Sex: Female

DRUGS (13)
  1. HUMIRA [Suspect]
     Indication: RHEUMATOID ARTHRITIS
     Dates: start: 20091201
  2. MEDROL [Concomitant]
     Indication: RHEUMATOID ARTHRITIS
     Dosage: 6 MG DAILY
  3. METHOTREXATE [Concomitant]
     Indication: RHEUMATOID ARTHRITIS
  4. LACIPIL [Concomitant]
     Indication: PRODUCT USED FOR UNKNOWN INDICATION
     Dosage: 4 MG DAILY
  5. GOPTEN [Concomitant]
     Indication: PRODUCT USED FOR UNKNOWN INDICATION
  6. PROPAFENONE HCL [Concomitant]
     Indication: PRODUCT USED FOR UNKNOWN INDICATION
  7. ASPIRIN [Concomitant]
     Indication: PRODUCT USED FOR UNKNOWN INDICATION
     Dosage: 100 MG DAILY
  8. TRAMAL [Concomitant]
     Indication: PRODUCT USED FOR UNKNOWN INDICATION
  9. PEPTORAN [Concomitant]
     Indication: PRODUCT USED FOR UNKNOWN INDICATION
  10. BONIVA [Concomitant]
     Indication: PRODUCT USED FOR UNKNOWN INDICATION
  11. CALCIUM [Concomitant]
     Indication: PRODUCT USED FOR UNKNOWN INDICATION
     Dosage: 1000 MG DAILY
  12. VITAMIN D [Concomitant]
     Indication: PRODUCT USED FOR UNKNOWN INDICATION
     Dosage: 4 DROPS DAILY
  13. SPIRIVA [Concomitant]
     Indication: PRODUCT USED FOR UNKNOWN INDICATION
     Route: 055

REACTIONS (1)
  - SUDDEN DEATH [None]
